FAERS Safety Report 23955925 (Version 1)
Quarter: 2024Q2

REPORT INFORMATION
  Report Type: Report from Study
  Country: US (occurrence: US)
  Receive Date: 20240610
  Receipt Date: 20240610
  Transmission Date: 20240716
  Serious: Yes (Other)
  Sender: FDA-Public Use
  Company Number: US-TEVA-VS-3172957

PATIENT
  Age: 24 Year
  Sex: Male

DRUGS (3)
  1. CLOZARIL [Suspect]
     Active Substance: CLOZAPINE
     Indication: Psychotic disorder
     Route: 065
     Dates: start: 20240119, end: 20240313
  2. ABILIFY [Concomitant]
     Active Substance: ARIPIPRAZOLE
  3. DEPAKOTE [Concomitant]
     Active Substance: DIVALPROEX SODIUM
     Dosage: TIME INTERVAL: 0.33333333 DAYS: EXTENDED RELEASE

REACTIONS (4)
  - Neutropenia [Recovered/Resolved]
  - Granulocytopenia [Unknown]
  - Adverse event [Unknown]
  - Treatment noncompliance [Unknown]

NARRATIVE: CASE EVENT DATE: 20240101
